FAERS Safety Report 4328355-7 (Version None)
Quarter: 2004Q1

REPORT INFORMATION
  Report Type: 
  Country: None (occurrence: None)
  Receive Date: 20040324
  Receipt Date: 20030515
  Transmission Date: 20041129
  Serious: Yes (Disabling)
  Sender: FDA-Public Use
  Company Number: BDI-005103

PATIENT
  Age: 41 Year
  Sex: Male
  Weight: 82 kg

DRUGS (2)
  1. MDP-BRACCO [Suspect]
     Indication: BONE SCAN
     Dosage: 26.7 MC IV
     Route: 042
     Dates: start: 20021204, end: 20021204
  2. ZOLOFT [Concomitant]

REACTIONS (9)
  - CAUSTIC INJURY [None]
  - EYE IRRITATION [None]
  - FEELING COLD [None]
  - HEADACHE [None]
  - INFLUENZA LIKE ILLNESS [None]
  - RASH [None]
  - SKIN DISCOLOURATION [None]
  - STOMATITIS [None]
  - URTICARIA [None]
